FAERS Safety Report 18918806 (Version 1)
Quarter: 2021Q1

REPORT INFORMATION
  Report Type: Report from Study
  Country: IT (occurrence: IT)
  Receive Date: 20210220
  Receipt Date: 20210220
  Transmission Date: 20210420
  Serious: Yes (Other)
  Sender: FDA-Public Use
  Company Number: IT-UNITED THERAPEUTICS-UNT-2021-002700

PATIENT

DRUGS (2)
  1. TADALAFIL. [Concomitant]
     Active Substance: TADALAFIL
     Indication: PRODUCT USED FOR UNKNOWN INDICATION
     Dosage: 40 MG
     Route: 065
  2. TREPROSTINIL SODIUM (SQ) [Suspect]
     Active Substance: TREPROSTINIL SODIUM
     Indication: PULMONARY ARTERIAL HYPERTENSION
     Dosage: UNK, CONTINUING (INFUSION RATE 0.012 ML/HR)
     Route: 058
     Dates: start: 20210211, end: 202102

REACTIONS (3)
  - Diarrhoea [Unknown]
  - Headache [Unknown]
  - Respiratory distress [Unknown]

NARRATIVE: CASE EVENT DATE: 20210211
